FAERS Safety Report 14493402 (Version 1)
Quarter: 2018Q1

REPORT INFORMATION
  Report Type: Spontaneous
  Country: IT (occurrence: IT)
  Receive Date: 20180206
  Receipt Date: 20180206
  Transmission Date: 20180509
  Serious: Yes (Death, Hospitalization, Other)
  Sender: FDA-Public Use
  Company Number: IT-DRREDDYS-GER/ITL/18/0096120

PATIENT
  Age: 86 Year
  Sex: Female
  Weight: 60 kg

DRUGS (2)
  1. CLOPIDOGREL [Suspect]
     Active Substance: CLOPIDOGREL BISULFATE
     Indication: ANGINA PECTORIS
     Route: 048
     Dates: start: 20161010
  2. ASPIRINA [Suspect]
     Active Substance: ASPIRIN
     Indication: ANGINA PECTORIS
     Dates: start: 20161010

REACTIONS (4)
  - Anaemia [Fatal]
  - Atrial fibrillation [Fatal]
  - Hypotension [Fatal]
  - Tachyarrhythmia [Fatal]

NARRATIVE: CASE EVENT DATE: 20171107
